FAERS Safety Report 12368380 (Version 1)
Quarter: 2016Q2

REPORT INFORMATION
  Report Type: Report from Study
  Country: US (occurrence: US)
  Receive Date: 20160513
  Receipt Date: 20160513
  Transmission Date: 20160815
  Serious: Yes (Other)
  Sender: FDA-Public Use
  Company Number: US-PURDUE PHARMA-USA-2016-0130805

PATIENT
  Sex: Female

DRUGS (2)
  1. OXYCONTIN [Suspect]
     Active Substance: OXYCODONE HYDROCHLORIDE
     Indication: SPINAL FUSION SURGERY
  2. OXYCONTIN [Suspect]
     Active Substance: OXYCODONE HYDROCHLORIDE
     Indication: BACK PAIN
     Dosage: 3X 40 MG, Q12H
     Route: 048
     Dates: start: 20160404

REACTIONS (11)
  - Brain abscess [Not Recovered/Not Resolved]
  - Craniotomy [Not Recovered/Not Resolved]
  - Acute myeloid leukaemia [Not Recovered/Not Resolved]
  - Diarrhoea [Recovered/Resolved]
  - Abdominal distension [Unknown]
  - Depression [Not Recovered/Not Resolved]
  - Constipation [Not Recovered/Not Resolved]
  - Seizure [Not Recovered/Not Resolved]
  - Anxiety [Not Recovered/Not Resolved]
  - Tremor [Not Recovered/Not Resolved]
  - Flatulence [Unknown]
